FAERS Safety Report 5149393-0 (Version None)
Quarter: 2006Q4

REPORT INFORMATION
  Report Type: 
  Country: None (occurrence: None)
  Receive Date: 20061113
  Receipt Date: 20051219
  Transmission Date: 20070319
  Serious: No
  Sender: FDA-Public Use
  Company Number: 429277

PATIENT
  Age: 73 Year
  Sex: Female
  Weight: 59.1 kg

DRUGS (5)
  1. COREG [Suspect]
     Indication: HYPERTENSION
     Dosage: 3.125MG PER DAY
     Route: 048
     Dates: start: 20051101
  2. AVAPRO [Concomitant]
     Dosage: 150MG TWICE PER DAY
  3. PLAVIX [Concomitant]
  4. NORTRIPTYLINE HCL [Concomitant]
  5. ZANTAC [Concomitant]
     Dosage: 150MG TWICE PER DAY

REACTIONS (3)
  - AMNESIA [None]
  - DYSPEPSIA [None]
  - DYSPNOEA [None]
